FAERS Safety Report 8123046 (Version 5)
Quarter: 2013Q1

REPORT INFORMATION
  Report Type: Spontaneous
  Country: US (occurrence: US)
  Receive Date: 20110906
  Receipt Date: 20130123
  Transmission Date: 20140127
  Serious: Yes (Other)
  Sender: FDA-Public Use
  Company Number: US-ASTRAZENECA-2011SE00160

PATIENT
  Age: 86 Year
  Sex: Female

DRUGS (6)
  1. PULMICORT RESPULES [Suspect]
     Indication: ASTHMA PROPHYLAXIS
     Route: 055
  2. SYMBICORT [Suspect]
     Dosage: UNKNOWN FREQUENCY
     Route: 055
  3. CRESTOR [Suspect]
     Route: 048
  4. ACCOLATE [Suspect]
     Route: 048
  5. PREDNISONE [Concomitant]
  6. ADVAIR [Concomitant]

REACTIONS (19)
  - Adenocarcinoma gastric [Unknown]
  - Neoplasm malignant [Unknown]
  - Fall [Unknown]
  - Spinal fracture [Unknown]
  - Pain [Unknown]
  - Asthma [Unknown]
  - Hearing impaired [Unknown]
  - Confusional state [Unknown]
  - Diabetes mellitus [Unknown]
  - Wheezing [Unknown]
  - Tooth abscess [Unknown]
  - Adverse event [Unknown]
  - Drug intolerance [Unknown]
  - Neuralgia [Unknown]
  - Gastric disorder [Unknown]
  - Cough [Unknown]
  - Dysphonia [Unknown]
  - Off label use [Unknown]
  - Intentional drug misuse [Unknown]
